FAERS Safety Report 7513011-4 (Version None)
Quarter: 2011Q2

REPORT INFORMATION
  Report Type: 
  Country: None (occurrence: None)
  Receive Date: 20110531
  Receipt Date: 20101214
  Transmission Date: 20111010
  Serious: No
  Sender: FDA-Public Use
  Company Number: US-NOVEN-ALL1-2010-06481

PATIENT
  Sex: Female
  Weight: 40.8 kg

DRUGS (2)
  1. DAYTRANA [Suspect]
     Indication: ATTENTION DEFICIT/HYPERACTIVITY DISORDER
     Dosage: 15 MG, 1X/DAY:QD
     Route: 062
     Dates: start: 20100601, end: 20100101
  2. DAYTRANA [Suspect]
     Dosage: 20 MG, 1X/DAY: QD
     Route: 062
     Dates: start: 20100101

REACTIONS (2)
  - APPLICATION SITE ERYTHEMA [None]
  - PRODUCT ADHESION ISSUE [None]
